FAERS Safety Report 6015030-6 (Version None)
Quarter: 2008Q4

REPORT INFORMATION
  Report Type: 
  Country: None (occurrence: None)
  Receive Date: 20081221
  Receipt Date: 20081121
  Transmission Date: 20090506
  Serious: Yes (Hospitalization)
  Sender: FDA-Public Use
  Company Number: US-BAYER-200837894NA

PATIENT
  Sex: Male

DRUGS (2)
  1. CIPRO [Suspect]
     Indication: LIMB INJURY
     Dates: start: 20041223, end: 20050101
  2. TETANUS [Concomitant]

REACTIONS (9)
  - BALANCE DISORDER [None]
  - DIZZINESS [None]
  - HYPOAESTHESIA [None]
  - JAW DISORDER [None]
  - MUSCLE SPASMS [None]
  - MUSCLE TIGHTNESS [None]
  - NERVOUS SYSTEM DISORDER [None]
  - RESPIRATORY DISORDER [None]
  - TREMOR [None]
